FAERS Safety Report 17599804 (Version 7)
Quarter: 2020Q4

REPORT INFORMATION
  Report Type: Spontaneous
  Country: US (occurrence: US)
  Receive Date: 20200330
  Receipt Date: 20201104
  Transmission Date: 20210113
  Serious: Yes (Other)
  Sender: FDA-Public Use
  Company Number: US-PFIZER INC-2020131730

PATIENT
  Age: 65 Year
  Sex: Female
  Weight: 81.65 kg

DRUGS (3)
  1. LYRICA [Suspect]
     Active Substance: PREGABALIN
     Indication: SYSTEMIC LUPUS ERYTHEMATOSUS
     Dosage: 50 MG (EVERY DAY AS NEEDED)
     Route: 048
  2. LYRICA [Suspect]
     Active Substance: PREGABALIN
     Indication: POLYNEUROPATHY
     Dosage: 50 MG, 1X/DAY (50 MG CAPSULE ONCE NIGHTLY)
     Route: 048
     Dates: start: 2016
  3. LYRICA [Suspect]
     Active Substance: PREGABALIN
     Indication: NEUROPATHY PERIPHERAL

REACTIONS (4)
  - Amnesia [Unknown]
  - Lacrimation increased [Not Recovered/Not Resolved]
  - Bladder prolapse [Unknown]
  - Anxiety [Unknown]

NARRATIVE: CASE EVENT DATE: 201902
